FAERS Safety Report 11922155 (Version 4)
Quarter: 2016Q1

REPORT INFORMATION
  Report Type: Report from Study
  Country: US (occurrence: US)
  Receive Date: 20160115
  Receipt Date: 20160308
  Transmission Date: 20160526
  Serious: Yes (Hospitalization)
  Sender: FDA-Public Use
  Company Number: US-EISAI MEDICAL RESEARCH-EC-2016-013575

PATIENT
  Sex: Male
  Weight: 90.7 kg

DRUGS (14)
  1. LEVOXYL [Concomitant]
     Active Substance: LEVOTHYROXINE SODIUM
  2. HCTZ [Concomitant]
     Active Substance: HYDROCHLOROTHIAZIDE
  3. ATENOLOL. [Concomitant]
     Active Substance: ATENOLOL
  4. XGEVA [Concomitant]
     Active Substance: DENOSUMAB
  5. GARLIC EXTRACT [Concomitant]
     Active Substance: GARLIC
  6. MULTIVITAMIN [Concomitant]
     Active Substance: VITAMINS
  7. GLYCERING SUPPOSITORY [Concomitant]
  8. DIGOXIN. [Concomitant]
     Active Substance: DIGOXIN
  9. MELOXICAM. [Concomitant]
     Active Substance: MELOXICAM
  10. ADALAT [Concomitant]
     Active Substance: NIFEDIPINE
  11. LENVIMA [Suspect]
     Active Substance: LENVATINIB
     Indication: THYROID CANCER
     Route: 048
     Dates: start: 201510, end: 201601
  12. LENVIMA [Suspect]
     Active Substance: LENVATINIB
     Route: 048
     Dates: start: 20160105, end: 201603
  13. TYLENOL [Concomitant]
     Active Substance: ACETAMINOPHEN
  14. POTASSIUM [Concomitant]
     Active Substance: POTASSIUM

REACTIONS (3)
  - Pulmonary haemorrhage [Recovered/Resolved]
  - Blood pressure increased [Unknown]
  - Mouth haemorrhage [Unknown]

NARRATIVE: CASE EVENT DATE: 2016
